FAERS Safety Report 12444017 (Version 2)
Quarter: 2020Q1

REPORT INFORMATION
  Report Type: Report from Study
  Country: US (occurrence: US)
  Receive Date: 20160607
  Receipt Date: 20200117
  Transmission Date: 20200409
  Serious: No
  Sender: FDA-Public Use
  Company Number: US-SA-2016SA078521

PATIENT
  Age: 57 Year
  Sex: Female

DRUGS (1)
  1. INSULIN GLARGINE [Suspect]
     Active Substance: INSULIN GLARGINE
     Indication: DIABETES MELLITUS
     Dosage: 60 IU, QD
     Route: 065
     Dates: start: 20151204

REACTIONS (3)
  - Blood glucose increased [Unknown]
  - Skin discolouration [Not Recovered/Not Resolved]
  - Product dose omission [Unknown]
